FAERS Safety Report 17659111 (Version 1)
Quarter: 2020Q2

REPORT INFORMATION
  Report Type: Spontaneous
  Country: US (occurrence: US)
  Receive Date: 20200413
  Receipt Date: 20200413
  Transmission Date: 20200713
  Serious: Yes (Life-Threatening, Hospitalization, Other)
  Sender: FDA-Public Use
  Company Number: US-AMGEN-USACT2020056626

PATIENT
  Age: 58 Year
  Sex: Female

DRUGS (30)
  1. ATENOLOL. [Concomitant]
     Active Substance: ATENOLOL
     Indication: CORONARY ARTERY DISEASE
     Dosage: 25 MILLIGRAM, 1X/DAY
     Route: 048
     Dates: start: 20130301
  2. LACTINEX [LACTOBACILLUS ACIDOPHILUS;LACTOBACILLUS BULGARICUS] [Concomitant]
     Dosage: UNK
  3. PROMETHAZINE [Concomitant]
     Active Substance: PROMETHAZINE HYDROCHLORIDE
     Dosage: 25 MILLIGRAM, SINGLE
     Route: 054
     Dates: start: 20131020
  4. EFFIENT [Concomitant]
     Active Substance: PRASUGREL HYDROCHLORIDE
     Indication: CORONARY ARTERY DISEASE
     Dosage: 10 MG, 1X/DAY
     Route: 048
     Dates: start: 20130301
  5. CALCIUM [Concomitant]
     Active Substance: CALCIUM
     Dosage: UNK
  6. PROMETHAZINE [Concomitant]
     Active Substance: PROMETHAZINE HYDROCHLORIDE
     Dosage: 25 MILLIGRAM, SINGLE
     Route: 042
     Dates: start: 20131020, end: 20131020
  7. ZADITOR [KETOTIFEN FUMARATE] [Concomitant]
     Indication: CATARACT
     Dosage: 0.035 %, 4X/DAY
     Route: 047
     Dates: start: 20140120
  8. LANTUS [Concomitant]
     Active Substance: INSULIN GLARGINE
     Indication: TYPE 2 DIABETES MELLITUS
     Dosage: 50 INTERNATIONAL UNIT, 1X/DAY
     Route: 058
     Dates: start: 20110121
  9. CLINDAMYCIN. [Concomitant]
     Active Substance: CLINDAMYCIN
     Indication: CELLULITIS
     Dosage: 300 MG,4 IN 1 D
     Route: 048
     Dates: start: 20140227, end: 20140308
  10. ETANERCEPT [Suspect]
     Active Substance: ETANERCEPT
     Dosage: 50 MILLIGRAM, WEEKLY
     Route: 058
     Dates: end: 20140321
  11. DIOVAN [Concomitant]
     Active Substance: VALSARTAN
     Indication: HYPERTENSION
     Dosage: 125 MILLIGRAM, 1X/DAY
     Route: 048
     Dates: start: 201201, end: 20130913
  12. METHOTREXATE. [Concomitant]
     Active Substance: METHOTREXATE
     Indication: RHEUMATOID ARTHRITIS
     Dosage: 20 MILLIGRAM, WEEKLY
     Route: 048
     Dates: start: 20110101
  13. HYDROXYCHLOROQUINE [Concomitant]
     Active Substance: HYDROXYCHLOROQUINE
     Indication: RHEUMATOID ARTHRITIS
     Dosage: 400 MILLIGRAM, 1X/DAY
     Route: 048
     Dates: start: 19950418
  14. WELCHOL [Concomitant]
     Active Substance: COLESEVELAM HYDROCHLORIDE
     Indication: DIARRHOEA
     Dosage: 625 MILLIGRAM, 2X/DAY
     Route: 048
     Dates: start: 20120322
  15. TYLENOL [Concomitant]
     Active Substance: ACETAMINOPHEN
     Indication: HEADACHE
     Dosage: 1000 MG, UNK
     Route: 048
  16. CLINDAMYCIN HYDROCHLORIDE. [Concomitant]
     Active Substance: CLINDAMYCIN HYDROCHLORIDE
     Indication: CHRONIC SINUSITIS
     Dosage: 300 MILLIGRAM, 3X/DAY
     Route: 048
     Dates: start: 20130814
  17. TETANUS AND DIPHTHERIA TOXOIDS ADSORBED (VACCINE) [Concomitant]
     Active Substance: CLOSTRIDIUM TETANI\CLOSTRIDIUM TETANI TOXOID ANTIGEN (FORMALDEHYDE INACTIVATED)\CORYNEBACTERIUM DIPHTHERIAE\CORYNEBACTERIUM DIPHTHERIAE TOXOID ANTIGEN (FORMALDEHYDE INACTIVATED)
     Dosage: 0.5 MILLILITER, UNK
     Route: 030
     Dates: start: 20130904, end: 20130904
  18. FOLIC ACID. [Concomitant]
     Active Substance: FOLIC ACID
     Dosage: 2 MILLIGRAM, 1X/DAY
     Route: 048
     Dates: start: 20090331
  19. CEFUROXIME. [Concomitant]
     Active Substance: CEFUROXIME
     Indication: URINARY TRACT INFECTION
     Dosage: 500 MILLIGRAM, 2X/DAY
     Route: 048
     Dates: start: 20130407, end: 20130417
  20. ZOFRAN [Concomitant]
     Active Substance: ONDANSETRON HYDROCHLORIDE
     Indication: PAIN
     Dosage: 8 MG AND 4MG
     Route: 042
     Dates: start: 20131020, end: 20131020
  21. SIMVASTATIN. [Concomitant]
     Active Substance: SIMVASTATIN
     Indication: HYPERLIPIDAEMIA
     Dosage: 40 MILLIGRAM, 1X/DAY
     Route: 048
     Dates: start: 2008
  22. ALEVE [Concomitant]
     Active Substance: NAPROXEN SODIUM
     Indication: HEADACHE
     Dosage: 220 MILLIGRAM, AS NEEDED
     Route: 048
  23. NEXIUM [Concomitant]
     Active Substance: ESOMEPRAZOLE MAGNESIUM
     Indication: GASTROOESOPHAGEAL REFLUX DISEASE
     Dosage: 40 MILLIGRAM, 1X/DAY
     Route: 048
     Dates: start: 20130320
  24. ETANERCEPT [Suspect]
     Active Substance: ETANERCEPT
     Indication: RHEUMATOID ARTHRITIS
     Dosage: 50 MILLIGRAM, WEEKLY
     Route: 058
     Dates: start: 20120614, end: 20130830
  25. ERGOCALCIFEROL. [Concomitant]
     Active Substance: ERGOCALCIFEROL
     Indication: PROPHYLAXIS
     Dosage: 50000 INTERNATIONAL UNIT, 3 IN 1 WK
     Route: 048
     Dates: start: 20120515
  26. IMODIUM [Concomitant]
     Active Substance: LOPERAMIDE HYDROCHLORIDE
     Indication: DIARRHOEA
     Dosage: 2 MILLIGRAM, AS NEEDED
     Route: 048
     Dates: start: 20120522
  27. ASPIRIN [ACETYLSALICYLIC ACID] [Concomitant]
     Active Substance: ASPIRIN
     Dosage: 81 MILLIGRAM, 1X/DAY
     Route: 048
     Dates: start: 20130212
  28. CEFUROXIME. [Concomitant]
     Active Substance: CEFUROXIME
     Dosage: 500 MILLIGRAM, 2X/DAY
     Route: 048
     Dates: start: 20140904, end: 20140914
  29. ZOFRAN [Concomitant]
     Active Substance: ONDANSETRON HYDROCHLORIDE
     Dosage: 4 MILLIGRAM, 4X/DAY
     Route: 048
     Dates: start: 20131020
  30. TORSEMIDE. [Concomitant]
     Active Substance: TORSEMIDE
     Dosage: 10 MG, 4X/DAY
     Route: 048
     Dates: start: 20140327

REACTIONS (4)
  - Hyperkalaemia [Recovered/Resolved]
  - Diabetic foot [Recovered/Resolved]
  - Epistaxis [Recovered/Resolved]
  - Chronic kidney disease [Unknown]

NARRATIVE: CASE EVENT DATE: 20130904
